FAERS Safety Report 6192938-2 (Version None)
Quarter: 2009Q2

REPORT INFORMATION
  Report Type: 
  Country: None (occurrence: None)
  Receive Date: 20090518
  Receipt Date: 20090508
  Transmission Date: 20091009
  Serious: Yes (Hospitalization, Other)
  Sender: FDA-Public Use
  Company Number: DE-ALLERGAN-0906286US

PATIENT
  Sex: Female
  Weight: 120 kg

DRUGS (2)
  1. BOTOX [Suspect]
     Indication: MUSCLE SPASTICITY
     Dosage: 500 UNITS, UNK
     Route: 030
  2. CHEMOTHERAPEUTICS NOS [Concomitant]
     Indication: OVARIAN CANCER

REACTIONS (1)
  - ILEUS [None]
